FAERS Safety Report 17991026 (Version 2)
Quarter: 2020Q3

REPORT INFORMATION
  Report Type: Report from Study
  Country: US (occurrence: US)
  Receive Date: 20200707
  Receipt Date: 20200715
  Transmission Date: 20201103
  Serious: Yes (Other)
  Sender: FDA-Public Use
  Company Number: US-TEVA-2020-US-1796940

PATIENT
  Age: 7 Year
  Sex: Male

DRUGS (11)
  1. AZATHIOPRINE. [Suspect]
     Active Substance: AZATHIOPRINE
     Indication: PROGRESSIVE FACIAL HEMIATROPHY
     Route: 065
  2. FOLIC?ACID [Concomitant]
     Active Substance: FOLIC ACID
     Indication: SUPPLEMENTATION THERAPY
     Route: 065
  3. ONDANSETRON [Concomitant]
     Active Substance: ONDANSETRON
     Indication: PREMEDICATION
     Route: 065
  4. METHOTREXATE. [Suspect]
     Active Substance: METHOTREXATE
     Route: 058
  5. PREDNISONE. [Suspect]
     Active Substance: PREDNISONE
     Indication: PROGRESSIVE FACIAL HEMIATROPHY
     Route: 065
  6. ABATACEPT [Suspect]
     Active Substance: ABATACEPT
     Indication: PROGRESSIVE FACIAL HEMIATROPHY
     Dosage: 10 MG/KG AT DAYS 0, 14 AND 28 AND THEN ONCE MONTHLY
     Route: 042
  7. IMMUNE GLOBULIN (IMMUNOGLOBULIN HUMAN NORMAL) [Suspect]
     Active Substance: HUMAN IMMUNOGLOBULIN G
     Indication: PROGRESSIVE FACIAL HEMIATROPHY
     Route: 042
  8. BOTULINUM TOXIN [Suspect]
     Active Substance: BOTULINUM TOXIN NOS
     Indication: PROGRESSIVE FACIAL HEMIATROPHY
     Route: 023
  9. METHOTREXATE. [Suspect]
     Active Substance: METHOTREXATE
     Indication: PROGRESSIVE FACIAL HEMIATROPHY
     Dosage: INITIALLY
     Route: 065
  10. METHYLPREDNISOLONE. [Suspect]
     Active Substance: METHYLPREDNISOLONE
     Indication: PROGRESSIVE FACIAL HEMIATROPHY
     Dosage: 30 MG/KG ONCE PER WEEK FOR 12 CONSECUTIVE WEEKS (MAXIMUM WEEKLY DOSE 1000 MG)
     Route: 042
  11. MYCOPHENOLATE MOFETIL. [Suspect]
     Active Substance: MYCOPHENOLATE MOFETIL
     Indication: PROGRESSIVE FACIAL HEMIATROPHY
     Route: 065

REACTIONS (5)
  - Off label use [Unknown]
  - Nausea [Unknown]
  - Aggression [Unknown]
  - Agitation [Unknown]
  - Drug ineffective [Unknown]
